FAERS Safety Report 9330269 (Version 3)
Quarter: 2013Q3

REPORT INFORMATION
  Report Type: Spontaneous
  Country: ES (occurrence: ES)
  Receive Date: 20130605
  Receipt Date: 20130903
  Transmission Date: 20140515
  Serious: Yes (Hospitalization)
  Sender: FDA-Public Use
  Company Number: ES-ROCHE-1232220

PATIENT
  Sex: Male

DRUGS (8)
  1. XOLAIR [Suspect]
     Indication: OCCUPATIONAL ASTHMA
     Route: 058
     Dates: start: 2011
  2. XOLAIR [Suspect]
     Indication: OFF LABEL USE
     Route: 058
     Dates: start: 20111212
  3. XOLAIR [Suspect]
     Indication: HEPATITIS C
     Route: 058
     Dates: end: 20130312
  4. XOLAIR [Suspect]
     Route: 058
  5. VICTRELIS [Suspect]
     Indication: HEPATITIS C
     Route: 065
  6. VICTRELIS [Suspect]
     Indication: OCCUPATIONAL ASTHMA
  7. PEG-INTERFERON ALFA 2A [Concomitant]
  8. RIBAVIRIN [Concomitant]

REACTIONS (5)
  - Cytomegalovirus infection [Unknown]
  - Respiratory disorder [Not Recovered/Not Resolved]
  - Viraemia [Unknown]
  - Hyperthermia [Unknown]
  - Herpes virus infection [Recovered/Resolved]
